FAERS Safety Report 5022461-X (Version None)
Quarter: 2006Q2

REPORT INFORMATION
  Report Type: 
  Country: None (occurrence: None)
  Receive Date: 20060609
  Receipt Date: 20060530
  Transmission Date: 20061013
  Serious: Yes (Other)
  Sender: FDA-Public Use
  Company Number: US-ROCHE-450220

PATIENT
  Age: 54 Year
  Sex: Female

DRUGS (2)
  1. PEGASYS [Suspect]
     Dosage: ROUTE REPORTED AS INJECTABLE.
     Route: 050
     Dates: start: 20060428
  2. COPEGUS [Suspect]
     Dosage: 3 TABLETS IN THE MORNING AND 2 TABLETS IN THE EVENING.
     Route: 048
     Dates: start: 20060428

REACTIONS (1)
  - MENINGITIS VIRAL [None]
